FAERS Safety Report 4917890-6 (Version None)
Quarter: 2006Q1

REPORT INFORMATION
  Report Type: 
  Country: None (occurrence: None)
  Receive Date: 20060215
  Receipt Date: 20060202
  Transmission Date: 20060701
  Serious: Yes (Hospitalization)
  Sender: FDA-Public Use
  Company Number: 2006018209

PATIENT
  Age: 60 Year
  Sex: Male

DRUGS (3)
  1. ATORVASTATIN CALCIUM [Suspect]
     Indication: DYSLIPIDAEMIA
     Dosage: 10 MG (10  MG, 1 IN 1 D), ORAL
     Route: 048
     Dates: start: 19981101
  2. LIPITOR [Suspect]
     Indication: DYSLIPIDAEMIA
  3. ZETIA [Concomitant]

REACTIONS (3)
  - DRUG INEFFECTIVE [None]
  - METASTASES TO BONE [None]
  - RENAL CELL CARCINOMA STAGE UNSPECIFIED [None]
